FAERS Safety Report 18055747 (Version 1)
Quarter: 2020Q3

REPORT INFORMATION
  Report Type: Spontaneous
  Country: BR (occurrence: BR)
  Receive Date: 20200722
  Receipt Date: 20200722
  Transmission Date: 20201103
  Serious: Yes (Other)
  Sender: FDA-Public Use
  Company Number: BR-GLAXOSMITHKLINE-BR2020AMR136375

PATIENT
  Sex: Female
  Weight: 84 kg

DRUGS (3)
  1. RELVAR ELLIPTA [Suspect]
     Active Substance: FLUTICASONE FUROATE\VILANTEROL TRIFENATATE
     Indication: EMPHYSEMA
     Dosage: 1 DF (JET), QD
  2. ANORO [Suspect]
     Active Substance: UMECLIDINIUM BROMIDE\VILANTEROL TRIFENATATE
     Indication: EMPHYSEMA
     Dosage: UNK
  3. VANISTO [Suspect]
     Active Substance: UMECLIDINIUM BROMIDE
     Indication: EMPHYSEMA
     Dosage: 1 DF (JET), QD

REACTIONS (14)
  - Arteriosclerosis coronary artery [Unknown]
  - Sinusitis [Recovered/Resolved]
  - Coronary artery occlusion [Unknown]
  - Sneezing [Recovered/Resolved]
  - Somnolence [Recovered/Resolved]
  - Treatment noncompliance [Unknown]
  - Rhinitis [Recovered/Resolved]
  - Mood altered [Recovered/Resolved]
  - Dyspnoea exertional [Recovered/Resolved]
  - Throat clearing [Recovered/Resolved]
  - Abdominal distension [Unknown]
  - Depression [Recovered/Resolved]
  - Weight increased [Not Recovered/Not Resolved]
  - Constipation [Unknown]
